FAERS Safety Report 8060185-5 (Version None)
Quarter: 2012Q1

REPORT INFORMATION
  Report Type: 
  Country: None (occurrence: None)
  Receive Date: 20120120
  Receipt Date: 20110926
  Transmission Date: 20120608
  Serious: No
  Sender: FDA-Public Use
  Company Number: US-NOVEN-11US003310

PATIENT
  Sex: Female
  Weight: 43.084 kg

DRUGS (2)
  1. FENTANYL [Suspect]
     Indication: PAIN
     Dosage: 50 UG/HR, Q72 HRS
     Route: 062
     Dates: start: 20110401
  2. PERCOCET [Concomitant]
     Dosage: 1 TABLET Q 4-6 HRS

REACTIONS (2)
  - INADEQUATE ANALGESIA [None]
  - PRODUCT QUALITY ISSUE [None]
